FAERS Safety Report 23041570 (Version 1)
Quarter: 2023Q4

REPORT INFORMATION
  Report Type: Report from Study
  Country: DE (occurrence: DE)
  Receive Date: 20231007
  Receipt Date: 20231007
  Transmission Date: 20240110
  Serious: Yes (Other)
  Sender: FDA-Public Use
  Company Number: DE-TAKEDA-2023TUS095096

PATIENT
  Age: 31 Year
  Sex: Female

DRUGS (3)
  1. VONICOG ALFA [Suspect]
     Active Substance: VONICOG ALFA
     Indication: Von Willebrand^s disease
     Dosage: UNK
     Route: 065
  2. LYSTEDA [Concomitant]
     Active Substance: TRANEXAMIC ACID
     Dosage: UNK
     Route: 065
  3. CYKLOKAPRON [Concomitant]
     Active Substance: TRANEXAMIC ACID
     Dosage: UNK
     Route: 065

REACTIONS (11)
  - Heavy menstrual bleeding [Unknown]
  - Haemorrhage [Unknown]
  - Autoimmune thyroiditis [Unknown]
  - Discomfort [Unknown]
  - Back pain [Unknown]
  - Endometriosis [Unknown]
  - Migraine [Unknown]
  - Complex regional pain syndrome [Unknown]
  - Pain [Unknown]
  - Drug ineffective [Unknown]
  - Off label use [Unknown]
